FAERS Safety Report 8386487-0 (Version None)
Quarter: 2012Q2

REPORT INFORMATION
  Report Type: 
  Country: None (occurrence: None)
  Receive Date: 20120525
  Receipt Date: 20110909
  Transmission Date: 20120825
  Serious: No
  Sender: FDA-Public Use
  Company Number: US-COVIDIEN/TYCO HEALTHCARE/MALLINCKRODT-T201101453

PATIENT
  Sex: Female
  Weight: 68.027 kg

DRUGS (2)
  1. TOFRANIL [Suspect]
     Indication: DEPRESSION
     Dosage: 50 MG BID
     Route: 048
     Dates: start: 20060101
  2. XANAX [Concomitant]
     Indication: DEPRESSION
     Dosage: UNK

REACTIONS (5)
  - PRODUCT TASTE ABNORMAL [None]
  - ABDOMINAL PAIN UPPER [None]
  - BACK PAIN [None]
  - ORAL DISCOMFORT [None]
  - HEADACHE [None]
